FAERS Safety Report 12475371 (Version 2)
Quarter: 2016Q3

REPORT INFORMATION
  Report Type: Spontaneous
  Country: US (occurrence: US)
  Receive Date: 20160617
  Receipt Date: 20160712
  Transmission Date: 20161109
  Serious: No
  Sender: FDA-Public Use
  Company Number: US-BAYER-2016-119036

PATIENT
  Age: 67 Year
  Sex: Female
  Weight: 54.42 kg

DRUGS (1)
  1. CLARITIN REDITABS [Suspect]
     Active Substance: LORATADINE
     Indication: SINUS PAIN
     Dosage: 0.5 DF, QD
     Route: 048
     Dates: start: 201603, end: 201603

REACTIONS (4)
  - Malaise [None]
  - Vomiting [Recovered/Resolved]
  - Nausea [Recovered/Resolved]
  - Product use issue [None]

NARRATIVE: CASE EVENT DATE: 201603
